FAERS Safety Report 6822299-4 (Version None)
Quarter: 2010Q3

REPORT INFORMATION
  Report Type: 
  Country: None (occurrence: None)
  Receive Date: 20100707
  Receipt Date: 20100707
  Transmission Date: 20110219
  Serious: Yes (Hospitalization, Disabling, Congenital Anomaly, Other)
  Sender: FDA-Public Use
  Company Number: None

PATIENT
  Age: 65 Year
  Sex: Female
  Weight: 167.8309 kg

DRUGS (1)
  1. METOCLOPRAMIDE [Suspect]
     Indication: GASTROOESOPHAGEAL REFLUX DISEASE
     Dosage: 1 TABLET 3 X DAILY PO
     Route: 048
     Dates: start: 20090501, end: 20100702

REACTIONS (9)
  - BLINDNESS [None]
  - DEPRESSION [None]
  - DROOLING [None]
  - MOVEMENT DISORDER [None]
  - MUSCLE STRAIN [None]
  - PAIN IN EXTREMITY [None]
  - RESTLESS LEGS SYNDROME [None]
  - RESTLESSNESS [None]
  - TONGUE DISORDER [None]
